FAERS Safety Report 6668780-2 (Version None)
Quarter: 2010Q2

REPORT INFORMATION
  Report Type: 
  Country: None (occurrence: None)
  Receive Date: 20100406
  Receipt Date: 20100326
  Transmission Date: 20101027
  Serious: Yes (Hospitalization)
  Sender: FDA-Public Use
  Company Number: JP-MPIJNJ-2010-01544

PATIENT

DRUGS (17)
  1. VELCADE [Suspect]
     Indication: MULTIPLE MYELOMA
     Dosage: 1.6 MG/M2, UNK
     Route: 042
     Dates: start: 20100119, end: 20100129
  2. VELCADE [Suspect]
     Dosage: 1.6 MG/M2, UNK
     Route: 042
     Dates: start: 20100209, end: 20100216
  3. ADRIACIN [Concomitant]
     Indication: MULTIPLE MYELOMA
     Dosage: 14 MG, QD
     Route: 042
     Dates: start: 20100119, end: 20100122
  4. ADRIACIN [Concomitant]
     Dosage: 14 MG, QD
     Route: 042
     Dates: start: 20100209, end: 20100212
  5. DEXAMETHASONE [Concomitant]
     Indication: MULTIPLE MYELOMA
     Dosage: 20 MG, UNK
     Route: 048
     Dates: start: 20100122, end: 20100220
  6. ONDANSETRON [Concomitant]
     Dosage: 4 MG, QD
     Route: 042
     Dates: start: 20100119, end: 20100122
  7. ONDANSETRON [Concomitant]
     Dosage: 4 MG, QD
     Route: 042
     Dates: start: 20100209, end: 20100212
  8. ZOMETA [Concomitant]
     Dosage: 4 MG, QD
     Route: 042
     Dates: start: 20100210, end: 20100210
  9. LACTEC G [Concomitant]
     Dosage: 1000 ML, QD
     Route: 042
     Dates: start: 20100216, end: 20100216
  10. ONEALFA [Concomitant]
     Dosage: 1 DF, QD
     Route: 048
     Dates: start: 20100204, end: 20100226
  11. MUNOBAL [Concomitant]
     Dosage: 5 MG, QD
     Route: 048
     Dates: start: 20100204, end: 20100226
  12. FAMOTIDINE [Concomitant]
     Dosage: 20 MG, QD
     Route: 048
     Dates: start: 20100204, end: 20100226
  13. MAGMITT [Concomitant]
     Dosage: 990 MG, QD
     Route: 048
     Dates: start: 20100204, end: 20100226
  14. MUCODYNE [Concomitant]
     Dosage: UNK
     Route: 048
     Dates: start: 20100119, end: 20100226
  15. COTRIM [Concomitant]
     Dosage: 1 DF, QD
     Route: 048
     Dates: start: 20100210, end: 20100226
  16. SELTOUCH [Concomitant]
     Dosage: 1 DF, QD
     Route: 062
     Dates: start: 20100210, end: 20100210
  17. GARENOXACIN [Concomitant]
     Dosage: 400 MG, QD
     Route: 048
     Dates: start: 20100216, end: 20100302

REACTIONS (1)
  - ORGANISING PNEUMONIA [None]
